FAERS Safety Report 5833300-9 (Version None)
Quarter: 2008Q3

REPORT INFORMATION
  Report Type: 
  Country: None (occurrence: None)
  Receive Date: 20080805
  Receipt Date: 20080728
  Transmission Date: 20090109
  Serious: Yes (Other)
  Sender: FDA-Public Use
  Company Number: CH-WYE-H05274408

PATIENT
  Sex: Female
  Weight: 43.8 kg

DRUGS (7)
  1. SIROLIMUS [Suspect]
     Indication: PROPHYLAXIS AGAINST TRANSPLANT REJECTION
     Route: 048
     Dates: start: 20080530, end: 20080609
  2. SIROLIMUS [Suspect]
     Route: 048
     Dates: start: 20080610, end: 20080619
  3. SIROLIMUS [Suspect]
     Route: 048
     Dates: start: 20080620, end: 20080621
  4. SIROLIMUS [Suspect]
     Route: 048
     Dates: start: 20080622
  5. MYCOPHENOLATE MOFETIL [Concomitant]
  6. PREDNISONE [Concomitant]
  7. TACROLIMUS [Concomitant]
     Dates: end: 20080619

REACTIONS (1)
  - HEART TRANSPLANT REJECTION [None]
